FAERS Safety Report 14901284 (Version 1)
Quarter: 2018Q2

REPORT INFORMATION
  Report Type: Spontaneous
  Country: US (occurrence: US)
  Receive Date: 20180516
  Receipt Date: 20180516
  Transmission Date: 20180711
  Serious: No
  Sender: FDA-Public Use
  Company Number: ALCN2014US002199

PATIENT
  Sex: Female

DRUGS (2)
  1. SYSTANE BALANCE [Suspect]
     Active Substance: PROPYLENE GLYCOL
     Indication: DRY EYE
     Dosage: 1 GTT, TID
     Route: 047
     Dates: start: 201403
  2. SYSTANE BALANCE [Suspect]
     Active Substance: PROPYLENE GLYCOL
     Dosage: 1 GTT, TID
     Route: 047
     Dates: start: 20140403

REACTIONS (2)
  - Product packaging issue [Recovered/Resolved]
  - Eyelid irritation [Recovered/Resolved]

NARRATIVE: CASE EVENT DATE: 201403
